FAERS Safety Report 22201630 (Version 1)
Quarter: 2023Q2

REPORT INFORMATION
  Report Type: Spontaneous
  Country: US (occurrence: None)
  Receive Date: 20230411
  Receipt Date: 20230411
  Transmission Date: 20230721
  Serious: Yes (Hospitalization, Other)
  Sender: FDA-Public Use
  Company Number: None

PATIENT
  Age: 76 Year
  Sex: Female
  Weight: 59.4 kg

DRUGS (13)
  1. HUMIRA [Suspect]
     Active Substance: ADALIMUMAB
     Indication: Arthritis
     Dosage: OTHER QUANTITY : 1 INJECTION(S);?OTHER FREQUENCY : EVERY OTHER WEEK;?OTHER ROUTE : INJECTION INTO TH
     Route: 050
     Dates: start: 20230212, end: 20230212
  2. ATORVASTATIN [Concomitant]
     Active Substance: ATORVASTATIN
  3. ELIQUIS [Concomitant]
     Active Substance: APIXABAN
  4. metoprolol svc ER [Concomitant]
  5. FOSAMAX [Concomitant]
     Active Substance: ALENDRONATE SODIUM
  6. VALACYCLOVIR [Concomitant]
     Active Substance: VALACYCLOVIR HYDROCHLORIDE
  7. GABAPENTIN [Concomitant]
     Active Substance: GABAPENTIN
  8. ESTRADIOL [Concomitant]
     Active Substance: ESTRADIOL
  9. CLOBETASOL [Concomitant]
     Active Substance: CLOBETASOL
  10. VITAMINS [Concomitant]
     Active Substance: VITAMINS
  11. HERBALS\TURMERIC [Concomitant]
     Active Substance: HERBALS\TURMERIC
  12. VITAMIN D3 [Concomitant]
     Active Substance: CHOLECALCIFEROL
  13. calcium citrate with Vit D [Concomitant]

REACTIONS (16)
  - Headache [None]
  - Fatigue [None]
  - Dizziness [None]
  - Loss of consciousness [None]
  - Fall [None]
  - Head injury [None]
  - Loss of consciousness [None]
  - Urticaria [None]
  - Injection site erythema [None]
  - Injection site urticaria [None]
  - Rash [None]
  - Rash [None]
  - Rash [None]
  - Drug hypersensitivity [None]
  - Fatigue [None]
  - Heart rate irregular [None]

NARRATIVE: CASE EVENT DATE: 20230219
